FAERS Safety Report 6699809-3 (Version None)
Quarter: 2010Q2

REPORT INFORMATION
  Report Type: 
  Country: None (occurrence: None)
  Receive Date: 20100428
  Receipt Date: 20090929
  Transmission Date: 20101027
  Serious: No
  Sender: FDA-Public Use
  Company Number: A0829432A

PATIENT
  Age: 50 Year
  Sex: Male

DRUGS (1)
  1. LUXIQ [Suspect]
     Indication: DRUG USE FOR UNKNOWN INDICATION
     Route: 061
     Dates: start: 20090724, end: 20090901

REACTIONS (1)
  - APPLICATION SITE PAIN [None]
